FAERS Safety Report 5298992-4 (Version None)
Quarter: 2007Q2

REPORT INFORMATION
  Report Type: 
  Country: None (occurrence: None)
  Receive Date: 20070412
  Receipt Date: 20070412
  Transmission Date: 20071010
  Serious: Yes (Other)
  Sender: FDA-Public Use
  Company Number: None

PATIENT
  Age: 79 Year
  Sex: Male
  Weight: 66 kg

DRUGS (3)
  1. WARFARIN SODIUM [Suspect]
     Indication: ANTICOAGULANT THERAPY
     Dosage: 3MG DAILY PO
     Route: 048
     Dates: start: 20060824, end: 20070408
  2. WARFARIN SODIUM [Suspect]
     Indication: ATRIAL FIBRILLATION
     Dosage: 3MG DAILY PO
     Route: 048
     Dates: start: 20060824, end: 20070408
  3. ASPIRIN [Suspect]
     Indication: CARDIAC DISORDER
     Dosage: 81MG DAILY PO
     Route: 048
     Dates: start: 20020429, end: 20070408

REACTIONS (1)
  - UPPER GASTROINTESTINAL HAEMORRHAGE [None]
